FAERS Safety Report 4648874-3 (Version None)
Quarter: 2005Q2

REPORT INFORMATION
  Report Type: 
  Country: None (occurrence: None)
  Receive Date: 20050429
  Receipt Date: 20050422
  Transmission Date: 20051028
  Serious: Yes (Disabling, Other)
  Sender: FDA-Public Use
  Company Number: US-MERCK-0504USA04191

PATIENT

DRUGS (1)
  1. VIOXX [Suspect]
     Route: 048
     Dates: start: 20020401, end: 20041001

REACTIONS (4)
  - ADVERSE EVENT [None]
  - CARDIAC DISORDER [None]
  - ECONOMIC PROBLEM [None]
  - MYOCARDIAL INFARCTION [None]
